FAERS Safety Report 9074401 (Version 1)
Quarter: 2013Q1

REPORT INFORMATION
  Report Type: Report from Study
  Country: US (occurrence: US)
  Receive Date: 20130128
  Receipt Date: 20130128
  Transmission Date: 20140127
  Serious: No
  Sender: FDA-Public Use
  Company Number: US-ABBOTT-12P-163-0915335-00

PATIENT
  Age: 71 Year
  Sex: Female

DRUGS (11)
  1. HUMIRA 40 MG/0.8 ML PEN [Suspect]
     Indication: RHEUMATOID ARTHRITIS
     Dates: start: 20120312
  2. ASCRIPTIN [Concomitant]
     Indication: PROPHYLAXIS
     Route: 048
  3. METFORMIN [Concomitant]
     Indication: DIABETES MELLITUS
     Route: 048
  4. LANTUS [Concomitant]
     Indication: DIABETES MELLITUS
     Dosage: AT BEDTIME
  5. PLAQUENIL [Concomitant]
     Indication: RHEUMATOID ARTHRITIS
     Dosage: 200MG DAILY
     Route: 048
  6. EXFORGE [Concomitant]
     Indication: HYPERTENSION
     Dosage: 10/320 DAILY
     Route: 048
  7. TEKTURNA [Concomitant]
     Indication: HYPERTENSION
     Dosage: 300MG DAILY
     Route: 048
  8. EFFEXOR XR [Concomitant]
     Indication: ANXIETY
     Route: 048
  9. DIAZEPAM [Concomitant]
     Indication: ANXIETY
  10. INDOCIN [Concomitant]
     Indication: RHEUMATOID ARTHRITIS
     Route: 048
  11. ZANTAC [Concomitant]
     Indication: PROPHYLAXIS
     Route: 048

REACTIONS (1)
  - Contusion [Not Recovered/Not Resolved]
